FAERS Safety Report 24996396 (Version 2)
Quarter: 2025Q1

REPORT INFORMATION
  Report Type: Spontaneous
  Country: US (occurrence: US)
  Receive Date: 20250221
  Receipt Date: 20250227
  Transmission Date: 20250409
  Serious: No
  Sender: PFIZER
  Company Number: US-PFIZER INC-202500039237

PATIENT
  Age: 60 Year
  Sex: Male
  Weight: 97.52 kg

DRUGS (1)
  1. SOMATROPIN [Suspect]
     Active Substance: SOMATROPIN
     Indication: Asthenia
     Dosage: 0.3 MG, 1X/DAY
     Route: 058

REACTIONS (1)
  - Off label use [Unknown]
